FAERS Safety Report 7231819-X (Version None)
Quarter: 2011Q1

REPORT INFORMATION
  Report Type: 
  Country: None (occurrence: None)
  Receive Date: 20110118
  Receipt Date: 20110112
  Transmission Date: 20110831
  Serious: Yes (Death)
  Sender: FDA-Public Use
  Company Number: RU-ASTRAZENECA-2011SE02146

PATIENT
  Age: 26 Year
  Sex: Female
  Weight: 78 kg

DRUGS (4)
  1. SALINE [Concomitant]
     Indication: CAESAREAN SECTION
     Route: 042
     Dates: start: 20110101
  2. PREMEDICATION DRUGS (NOT SPECIFIED) [Concomitant]
     Indication: CAESAREAN SECTION
     Route: 065
     Dates: start: 20110101
  3. MARCAINE [Suspect]
     Indication: ANAESTHESIA
     Dosage: 15 MG TEST DOSE AND 85 MG MAIN DOSE. TOTAL DOSE WAS 100 MG.
     Route: 008
     Dates: start: 20110101, end: 20110101
  4. STABISOL GAK [Concomitant]
     Indication: CAESAREAN SECTION
     Dosage: ONCE/SINGLE ADMINISTRATION
     Route: 042
     Dates: start: 20110101

REACTIONS (4)
  - OXYGEN SATURATION DECREASED [None]
  - BRADYCARDIA [None]
  - HYPOTENSION [None]
  - PULMONARY OEDEMA [None]
